FAERS Safety Report 10272143 (Version 1)
Quarter: 2014Q3

REPORT INFORMATION
  Report Type: Spontaneous
  Country: US (occurrence: US)
  Receive Date: 20140702
  Receipt Date: 20140702
  Transmission Date: 20150326
  Serious: No
  Sender: FDA-Public Use
  Company Number: US-009507513-1406USA013541

PATIENT
  Age: 64 Year
  Sex: Male

DRUGS (7)
  1. REMERON [Suspect]
     Active Substance: MIRTAZAPINE
     Indication: INSOMNIA
     Dosage: 3-5 PILLS AT BEDTIME
     Route: 048
     Dates: start: 201405, end: 20140622
  2. REMERON [Suspect]
     Active Substance: MIRTAZAPINE
     Indication: DEPRESSION
     Dosage: 45 MG, HS
     Route: 048
     Dates: start: 2011, end: 201405
  3. LEVOTHYROXINE SODIUM. [Concomitant]
     Active Substance: LEVOTHYROXINE SODIUM
     Route: 048
  4. ZOCOR [Concomitant]
     Active Substance: SIMVASTATIN
     Route: 048
  5. REMERON [Suspect]
     Active Substance: MIRTAZAPINE
     Dosage: 45 MG, HS
     Route: 048
     Dates: start: 20140623
  6. GLIMEPIRIDE (+) METFORMIN HYDROCHLORIDE [Concomitant]
  7. PRINIVIL [Concomitant]
     Active Substance: LISINOPRIL
     Route: 048

REACTIONS (7)
  - Myalgia [Recovering/Resolving]
  - Overdose [Unknown]
  - Somnolence [Unknown]
  - Feeling hot [Recovering/Resolving]
  - Pyrexia [Recovering/Resolving]
  - Drug ineffective [Unknown]
  - Chills [Recovering/Resolving]

NARRATIVE: CASE EVENT DATE: 201405
